FAERS Safety Report 17080922 (Version 1)
Quarter: 2019Q4

REPORT INFORMATION
  Report Type: Report from Study
  Country: AU (occurrence: AU)
  Receive Date: 20191127
  Receipt Date: 20191127
  Transmission Date: 20200122
  Serious: Yes (Hospitalization)
  Sender: FDA-Public Use
  Company Number: AU-ROCHE-2475335

PATIENT
  Sex: Male

DRUGS (4)
  1. FLUOROURACIL. [Suspect]
     Active Substance: FLUOROURACIL
     Indication: COLORECTAL CANCER METASTATIC
     Dosage: ON 24/OCT/2019, HE RECEIVED THE MOST RECENT DOSE OF FLUOROURACIL PRIOR TO SERIOUS ADVERSE EVENT ONSE
     Route: 065
     Dates: start: 20190918
  2. FOLINIC ACID [Suspect]
     Active Substance: LEUCOVORIN
     Indication: COLORECTAL CANCER METASTATIC
     Dosage: ON 24/OCT/2019, HE RECEIVED THE MOST RECENT DOSE OF FOLINIC ACID PRIOR TO SERIOUS ADVERSE EVENT ONSE
     Route: 065
     Dates: start: 20190918
  3. BEVACIZUMAB. [Suspect]
     Active Substance: BEVACIZUMAB
     Indication: COLORECTAL CANCER METASTATIC
     Dosage: ON 24/OCT/2019, HE RECEIVED THE MOST RECENT DOSE OF BEVACIZUMAB PRIOR TO SERIOUS ADVERSE EVENT ONSET
     Route: 065
     Dates: start: 20190918
  4. IRINOTECAN [Suspect]
     Active Substance: IRINOTECAN
     Indication: COLORECTAL CANCER METASTATIC
     Dosage: ON 24/OCT/2019, HE RECEIVED THE MOST RECENT DOSE OF IRINOTECAN PRIOR TO SERIOUS ADVERSE EVENT ONSET.
     Route: 065
     Dates: start: 20190918

REACTIONS (3)
  - Clostridium difficile infection [Not Recovered/Not Resolved]
  - Septic shock [Not Recovered/Not Resolved]
  - Megacolon [Not Recovered/Not Resolved]

NARRATIVE: CASE EVENT DATE: 20191024
